FAERS Safety Report 8548425-7 (Version None)
Quarter: 2012Q3

REPORT INFORMATION
  Report Type: 
  Country: None (occurrence: None)
  Receive Date: 20120730
  Receipt Date: 20120718
  Transmission Date: 20120928
  Serious: Yes (Disabling, Other)
  Sender: FDA-Public Use
  Company Number: GB-MSD-1207GBR006789

PATIENT

DRUGS (1)
  1. PROSCAR [Suspect]
     Indication: ALOPECIA
     Dosage: 1 MG, UNK
     Route: 048
     Dates: start: 20000701, end: 20040701

REACTIONS (5)
  - DISTURBANCE IN ATTENTION [None]
  - CHEST PAIN [None]
  - ASTHENIA [None]
  - LOSS OF LIBIDO [None]
  - PAIN IN EXTREMITY [None]
